FAERS Safety Report 14035654 (Version 1)
Quarter: 2017Q4

REPORT INFORMATION
  Report Type: Spontaneous
  Country: IL (occurrence: IL)
  Receive Date: 20171003
  Receipt Date: 20171003
  Transmission Date: 20180321
  Serious: Yes (Hospitalization, Other)
  Sender: FDA-Public Use
  Company Number: IL-GILEAD-2017-0296238

PATIENT
  Age: 61 Year
  Sex: Male

DRUGS (2)
  1. HARVONI [Suspect]
     Active Substance: LEDIPASVIR\SOFOSBUVIR
     Indication: CHRONIC HEPATITIS C
     Dosage: UNK
     Route: 065
     Dates: start: 20170628, end: 20170831
  2. RIBAVIRIN. [Suspect]
     Active Substance: RIBAVIRIN
     Indication: CHRONIC HEPATITIS C
     Dosage: UNK
     Route: 065
     Dates: start: 20170628, end: 20170730

REACTIONS (12)
  - Oedema peripheral [Unknown]
  - Malaise [Recovering/Resolving]
  - Splenomegaly [Unknown]
  - Confusional state [Unknown]
  - Diarrhoea [Unknown]
  - Ascites [Unknown]
  - Renal impairment [Unknown]
  - Asthenia [Recovering/Resolving]
  - Pancytopenia [Unknown]
  - Abdominal distension [Unknown]
  - Abdominal pain upper [Unknown]
  - Weight decreased [Unknown]
